FAERS Safety Report 13554014 (Version 2)
Quarter: 2017Q3

REPORT INFORMATION
  Report Type: Report from Study
  Country: US (occurrence: US)
  Receive Date: 20170517
  Receipt Date: 20170703
  Transmission Date: 20171127
  Serious: No
  Sender: FDA-Public Use
  Company Number: PHEH2017US014717

PATIENT
  Sex: Female

DRUGS (1)
  1. AFINITOR [Suspect]
     Active Substance: EVEROLIMUS
     Indication: ANGIOMYOLIPOMA
     Dosage: 7.5 MG, QD
     Route: 048
     Dates: start: 20161121

REACTIONS (4)
  - Oral pain [Unknown]
  - Nasopharyngitis [Not Recovered/Not Resolved]
  - Mouth ulceration [Unknown]
  - Cough [Not Recovered/Not Resolved]
